FAERS Safety Report 10353715 (Version 1)
Quarter: 2014Q3

REPORT INFORMATION
  Report Type: Spontaneous
  Country: US (occurrence: None)
  Receive Date: 20140729
  Receipt Date: 20140729
  Transmission Date: 20150326
  Serious: Yes (Death)
  Sender: FDA-Public Use
  Company Number: None

PATIENT
  Age: 83 Year
  Sex: Female
  Weight: 68.04 kg

DRUGS (1)
  1. ELIQUIS [Suspect]
     Active Substance: APIXABAN
     Indication: PALPITATIONS
     Dosage: 1 TAB 2X PER DAY  TWICE DAILY TAKEN BY MOUTH
     Route: 048
     Dates: start: 20140122, end: 20140215

REACTIONS (3)
  - Head injury [None]
  - Fall [None]
  - Haemorrhage [None]

NARRATIVE: CASE EVENT DATE: 20140216
